FAERS Safety Report 16985024 (Version 1)
Quarter: 2019Q4

REPORT INFORMATION
  Report Type: Spontaneous
  Country: US (occurrence: US)
  Receive Date: 20191031
  Receipt Date: 20191031
  Transmission Date: 20200122
  Serious: No
  Sender: FDA-Public Use
  Company Number: None

PATIENT
  Age: 44 Year
  Sex: Female
  Weight: 111.6 kg

DRUGS (9)
  1. SIMVISATIN [Concomitant]
  2. CO Q -10 [Concomitant]
  3. FISH OIL [Concomitant]
     Active Substance: FISH OIL
  4. AIMOVIG [Suspect]
     Active Substance: ERENUMAB-AOOE
     Indication: MIGRAINE
     Dosage: ?          QUANTITY:1 INJECTION(S);OTHER FREQUENCY:PER MONTH;OTHER ROUTE:SUB Q INJECTION?
     Dates: start: 20190410, end: 20191010
  5. TROKENDI XR [Concomitant]
     Active Substance: TOPIRAMATE
  6. LOSARTAN. [Concomitant]
     Active Substance: LOSARTAN
  7. VITAMIN B2 [Concomitant]
     Active Substance: RIBOFLAVIN
  8. PROPENDI [Concomitant]
  9. VITAMIN D [Concomitant]
     Active Substance: VITAMIN D NOS

REACTIONS (1)
  - Alopecia [None]

NARRATIVE: CASE EVENT DATE: 20190710
